FAERS Safety Report 4300650-7 (Version None)
Quarter: 2004Q1

REPORT INFORMATION
  Report Type: 
  Country: None (occurrence: None)
  Receive Date: 20040219
  Receipt Date: 20040219
  Transmission Date: 20041129
  Serious: Yes (Hospitalization)
  Sender: FDA-Public Use
  Company Number: None

PATIENT
  Age: 61 Year
  Sex: Male

DRUGS (8)
  1. LISINOPRIL [Suspect]
     Indication: HYPERTENSION
     Dosage: 20 MG QD
  2. TYLENOL (CAPLET) [Concomitant]
  3. BUPROPRON [Concomitant]
  4. DIAZAPEM [Concomitant]
  5. GABAPENTIN [Concomitant]
  6. TEMAZIPAM [Concomitant]
  7. GEMFIBROZIL [Concomitant]
  8. SIMVASTATIN [Concomitant]

REACTIONS (2)
  - HYPERKALAEMIA [None]
  - MENTAL STATUS CHANGES [None]
